FAERS Safety Report 14309613 (Version 2)
Quarter: 2017Q4

REPORT INFORMATION
  Report Type: Spontaneous
  Country: CA (occurrence: CA)
  Receive Date: 20171220
  Receipt Date: 20171221
  Transmission Date: 20180321
  Serious: Yes (Other)
  Sender: FDA-Public Use
  Company Number: CA-CELLTRION INC.-2016CA011045

PATIENT

DRUGS (7)
  1. INFLECTRA [Suspect]
     Active Substance: INFLIXIMAB-DYYB
     Dosage: 225 MG, CYCLIC (EVERY 6 WEEKS FOR12 MONTHS)
     Route: 042
  2. HYDROXYCHLOROQUINE [Concomitant]
     Active Substance: HYDROXYCHLOROQUINE
     Dosage: 400 MG, DAILY
     Route: 048
  3. NAPROXEN. [Concomitant]
     Active Substance: NAPROXEN
     Dosage: 500 MG, 2X/DAY
     Route: 048
  4. SULFASALAZINE. [Concomitant]
     Active Substance: SULFASALAZINE
     Dosage: 1000 MG, 2X/DAY
     Route: 048
  5. INFLECTRA [Suspect]
     Active Substance: INFLIXIMAB-DYYB
     Indication: RHEUMATOID ARTHRITIS
     Dosage: 225 MG, CYCLIC (EVERY 0, 2, 6 WEEKS, THEN EVERY 8 WEEKS FOR 12 MONTHS)
     Route: 042
     Dates: start: 20150713
  6. INFLECTRA [Suspect]
     Active Substance: INFLIXIMAB-DYYB
     Dosage: 400 MG, EVERY 6 WEEKS
     Route: 042
     Dates: start: 20170712, end: 20171207
  7. INFLECTRA [Suspect]
     Active Substance: INFLIXIMAB-DYYB
     Dosage: 400 MG, EVERY 6 WEEKS
     Route: 042
     Dates: start: 20170712, end: 20171207

REACTIONS (4)
  - Product use issue [Unknown]
  - Arthralgia [Unknown]
  - Condition aggravated [Not Recovered/Not Resolved]
  - Joint swelling [Unknown]

NARRATIVE: CASE EVENT DATE: 201604
